FAERS Safety Report 4451709-5 (Version None)
Quarter: 2004Q3

REPORT INFORMATION
  Report Type: 
  Country: None (occurrence: None)
  Receive Date: 20040916
  Receipt Date: 20040909
  Transmission Date: 20050211
  Serious: Yes (Other)
  Sender: FDA-Public Use
  Company Number: US-MERCK-0409USA00710

PATIENT
  Age: 4 Year
  Sex: Male

DRUGS (4)
  1. AMOXICILLIN [Concomitant]
     Route: 065
  2. PULMICORT [Concomitant]
     Route: 065
  3. XOPENEX [Concomitant]
     Route: 065
  4. SINGULAIR [Suspect]
     Indication: HYPERSENSITIVITY
     Route: 048
     Dates: start: 20040226, end: 20040728

REACTIONS (3)
  - EAR INFECTION [None]
  - IMMUNOLOGY TEST ABNORMAL [None]
  - STEVENS-JOHNSON SYNDROME [None]
